FAERS Safety Report 6213753-7 (Version None)
Quarter: 2009Q2

REPORT INFORMATION
  Report Type: 
  Country: None (occurrence: None)
  Receive Date: 20090602
  Receipt Date: 20090527
  Transmission Date: 20091009
  Serious: Yes (Other)
  Sender: FDA-Public Use
  Company Number: CHPA2009US12105

PATIENT
  Age: 46 Year
  Sex: Male

DRUGS (1)
  1. MAALOX ADV MAXIMUM STRENGTH ANTIACIDIANTIGAS (NCH) (ALUMINIUM HYDROXID [Suspect]
     Indication: GASTROOESOPHAGEAL REFLUX DISEASE
     Dosage: 2 TSP, QD, ORAL
     Route: 048
     Dates: end: 20090520

REACTIONS (2)
  - ANAL HAEMORRHAGE [None]
  - DIARRHOEA [None]
